FAERS Safety Report 9135790 (Version 2)
Quarter: 2013Q1

REPORT INFORMATION
  Report Type: Report from Study
  Country: BR (occurrence: BR)
  Receive Date: 20130304
  Receipt Date: 20130307
  Transmission Date: 20140127
  Serious: Yes (Hospitalization)
  Sender: FDA-Public Use
  Company Number: BR-ABBOTT-13P-020-1055272-00

PATIENT
  Age: 63 None
  Sex: Male
  Weight: 104 kg

DRUGS (14)
  1. HUMIRA [Suspect]
     Indication: PRODUCT USED FOR UNKNOWN INDICATION
     Dosage: WEEK 0
     Route: 058
     Dates: start: 2011
  2. HUMIRA [Suspect]
     Dosage: WEEK 1
     Route: 058
     Dates: end: 2011
  3. ANCORON [Concomitant]
     Indication: CARDIAC DISORDER
     Dosage: 1/2 TABLET IN MORNING AND AT NIGHT
     Route: 048
  4. MERITOR [Concomitant]
     Indication: DIABETES MELLITUS
     Dosage: WHEN NEEDED PATIENT TAKES ANOTHER DOSE OF 1/2 TABLET
     Route: 048
  5. CAPTOPRIL [Concomitant]
     Indication: HYPERTENSION
     Route: 048
  6. LASIX [Concomitant]
     Indication: DYSURIA
     Route: 048
  7. CARVEDILOL [Concomitant]
     Indication: CARDIAC DISORDER
     Route: 048
  8. FLUOXETINE [Concomitant]
     Indication: ANXIETY
     Dosage: 1 TABLET IN THE MORNING
     Route: 048
  9. FLUOXETINE [Concomitant]
     Indication: DEPRESSION
  10. FLUOXETINE [Concomitant]
     Indication: FEELING JITTERY
  11. DIAZEPAM [Concomitant]
     Indication: SLEEP DISORDER THERAPY
     Dosage: 1 TABLET BEFORE SLEEP
     Route: 048
  12. UNKNOWN DRUG [Concomitant]
     Indication: PSORIASIS
     Dosage: TAKES WHEN LESIONS ITCH AND PEEL
     Route: 048
  13. MUTTON TALLOW OIL [Concomitant]
     Indication: PSORIASIS
  14. UNKNOWN DRUG [Concomitant]
     Indication: PSORIASIS

REACTIONS (7)
  - Pulmonary oedema [Unknown]
  - Venous occlusion [Recovering/Resolving]
  - Local swelling [Recovered/Resolved]
  - Myocardial oedema [Recovering/Resolving]
  - Joint swelling [Recovering/Resolving]
  - Asthenia [Not Recovered/Not Resolved]
  - Psoriasis [Unknown]
